FAERS Safety Report 5274383-7 (Version None)
Quarter: 2007Q1

REPORT INFORMATION
  Report Type: 
  Country: None (occurrence: None)
  Receive Date: 20070323
  Receipt Date: 20070315
  Transmission Date: 20070707
  Serious: Yes (Hospitalization, Other)
  Sender: FDA-Public Use
  Company Number: US-PFIZER INC-2006153980

PATIENT
  Sex: Male

DRUGS (5)
  1. BEXTRA [Suspect]
     Indication: ARTHRITIS
  2. VIOXX [Concomitant]
  3. CELEBREX [Concomitant]
  4. ASPIRIN [Concomitant]
  5. TYLENOL [Concomitant]

REACTIONS (2)
  - CARDIOVASCULAR DISORDER [None]
  - MYOCARDIAL INFARCTION [None]
